FAERS Safety Report 16052148 (Version 1)
Quarter: 2019Q1

REPORT INFORMATION
  Report Type: Spontaneous
  Country: US (occurrence: US)
  Receive Date: 20190208
  Receipt Date: 20190208
  Transmission Date: 20190418
  Serious: No
  Sender: FDA-Public Use
  Company Number: None

PATIENT
  Age: 74 Year
  Sex: Female
  Weight: 47.63 kg

DRUGS (2)
  1. TYMLOS [Suspect]
     Active Substance: ABALOPARATIDE
     Indication: SENILE OSTEOPOROSIS
     Route: 058
     Dates: start: 201809
  2. TYMLOS [Suspect]
     Active Substance: ABALOPARATIDE
     Indication: SJOGREN^S SYNDROME

REACTIONS (2)
  - Rash [None]
  - Increased viscosity of upper respiratory secretion [None]
